FAERS Safety Report 6015717-5 (Version None)
Quarter: 2008Q4

REPORT INFORMATION
  Report Type: 
  Country: None (occurrence: None)
  Receive Date: 20081219
  Receipt Date: 20081219
  Transmission Date: 20090506
  Serious: Yes (Disabling)
  Sender: FDA-Public Use
  Company Number: None

PATIENT
  Age: 60 Year
  Sex: Male
  Weight: 62.5964 kg

DRUGS (2)
  1. CYMBALTA [Suspect]
     Dosage: 5 1
     Dates: start: 20080712, end: 20081012
  2. CIPRALEX 20 [Suspect]
     Dates: start: 20080912, end: 20080913

REACTIONS (2)
  - BURNING SENSATION [None]
  - NERVOUS SYSTEM DISORDER [None]
